FAERS Safety Report 5510129-2 (Version None)
Quarter: 2007Q4

REPORT INFORMATION
  Report Type: 
  Country: None (occurrence: None)
  Receive Date: 20071106
  Receipt Date: 20071024
  Transmission Date: 20080405
  Serious: Yes (Death, Life-Threatening)
  Sender: FDA-Public Use
  Company Number: 2007US001814

PATIENT
  Age: 33 Year
  Sex: Male

DRUGS (17)
  1. AMBISOME [Suspect]
     Indication: BRONCHOPULMONARY ASPERGILLOSIS
     Dosage: 140 MG, UID/QD, IV DRIP
     Route: 041
     Dates: start: 20070626, end: 20070630
  2. VFEND [Suspect]
     Indication: BRONCHOPULMONARY ASPERGILLOSIS
     Dosage: 480 MG, UID/QD, IV DRIP
     Route: 041
     Dates: start: 20070614, end: 20070625
  3. DECADRON [Concomitant]
  4. ERYTHROCIN [Concomitant]
  5. CELLCEPT [Concomitant]
  6. BAKTAR                      (SULFAMETHOXAZOLE, TRIMETHOPRIM) [Concomitant]
  7. LASIX [Concomitant]
  8. AMIKACIN SULFATE [Concomitant]
  9. MAXIPIME [Concomitant]
  10. LASTET                      (ETOPOSIDE) [Concomitant]
  11. ZYLORIC [Concomitant]
  12. SOLU-CORTEF [Concomitant]
  13. METHYLPREDNISOLONE [Concomitant]
  14. DOPAMINE HYDROCHLORIDE [Concomitant]
  15. ETOPOSIDE [Concomitant]
  16. MEROPEN       (MEROPENEM) [Concomitant]
  17. VANCOMYCIN HYDROCHLORIDE [Concomitant]

REACTIONS (18)
  - ALANINE AMINOTRANSFERASE INCREASED [None]
  - ASPARTATE AMINOTRANSFERASE INCREASED [None]
  - BLOOD ALKALINE PHOSPHATASE INCREASED [None]
  - BLOOD LACTATE DEHYDROGENASE INCREASED [None]
  - CARDIO-RESPIRATORY ARREST [None]
  - CONDITION AGGRAVATED [None]
  - DEPRESSED LEVEL OF CONSCIOUSNESS [None]
  - HEPATIC FUNCTION ABNORMAL [None]
  - LIVER DISORDER [None]
  - LUNG INFILTRATION [None]
  - LYMPHOMA [None]
  - MEDIASTINUM NEOPLASM [None]
  - METASTASES TO CENTRAL NERVOUS SYSTEM [None]
  - METASTASES TO LIVER [None]
  - NEOPLASM RECURRENCE [None]
  - PNEUMONIA BACTERIAL [None]
  - PSEUDOMONAS INFECTION [None]
  - RESPIRATORY FAILURE [None]
